FAERS Safety Report 5506102-0 (Version None)
Quarter: 2007Q4

REPORT INFORMATION
  Report Type: 
  Country: None (occurrence: None)
  Receive Date: 20071105
  Receipt Date: 20071031
  Transmission Date: 20080405
  Serious: Yes (Hospitalization)
  Sender: FDA-Public Use
  Company Number: US-BRISTOL-MYERS SQUIBB COMPANY-13965256

PATIENT
  Age: 72 Year
  Sex: Male
  Weight: 69 kg

DRUGS (8)
  1. DASATINIB [Suspect]
     Indication: ADENOCARCINOMA PANCREAS
     Route: 048
     Dates: start: 20070828, end: 20070909
  2. DOXAZOSIN MESYLATE [Concomitant]
  3. GLIMEPIRIDE [Concomitant]
  4. M.V.I. [Concomitant]
  5. PROSCAR [Concomitant]
  6. LISINOPRIL [Concomitant]
  7. INSULIN [Concomitant]
  8. LIPRAM [Concomitant]

REACTIONS (2)
  - OEDEMA PERIPHERAL [None]
  - THROMBOSIS [None]
